FAERS Safety Report 5410201-1 (Version None)
Quarter: 2007Q3

REPORT INFORMATION
  Report Type: 
  Country: None (occurrence: None)
  Receive Date: 20070809
  Receipt Date: 20070727
  Transmission Date: 20080115
  Serious: Yes (Hospitalization)
  Sender: FDA-Public Use
  Company Number: NL-MERCK-0708NLD00003

PATIENT
  Age: 24 Year
  Sex: Female

DRUGS (1)
  1. MAXALT [Suspect]
     Route: 065

REACTIONS (2)
  - STAPHYLOCOCCAL INFECTION [None]
  - TOXIC EPIDERMAL NECROLYSIS [None]
